FAERS Safety Report 8833446 (Version 1)
Quarter: 2012Q4

REPORT INFORMATION
  Report Type: 
  Country: US (occurrence: US)
  Receive Date: 20121010
  Receipt Date: 20121010
  Transmission Date: 20130627
  Serious: No
  Sender: FDA-Public Use
  Company Number: US-VERTEX PHARMACEUTICAL INC.-2012-022020

PATIENT
  Age: 38 Year
  Sex: Male
  Weight: 177 kg

DRUGS (6)
  1. INCIVEK [Suspect]
     Indication: HEPATITIS C
     Dosage: 1 DF, tid
     Route: 048
     Dates: start: 20120827
  2. INCIVEK [Suspect]
     Indication: HEPATITIS C
  3. PEGASYS [Suspect]
     Indication: HEPATITIS C
  4. RIBAVIRIN [Suspect]
     Indication: HEPATITIS C
  5. RAYATEZ [Concomitant]
  6. EPSICOM [Concomitant]

REACTIONS (2)
  - Incorrect dose administered [Unknown]
  - Off label use [Unknown]
